FAERS Safety Report 6760511-0 (Version None)
Quarter: 2010Q2

REPORT INFORMATION
  Report Type: 
  Country: None (occurrence: None)
  Receive Date: 20100604
  Receipt Date: 20090622
  Transmission Date: 20101027
  Serious: Yes (Other)
  Sender: FDA-Public Use
  Company Number: 2009BH010393

PATIENT
  Sex: Male

DRUGS (1)
  1. ADVATE [Suspect]
     Indication: FACTOR VIII DEFICIENCY
     Dosage: ;AS NEEDED;

REACTIONS (1)
  - ANAPHYLACTIC REACTION [None]
